FAERS Safety Report 5646043-1 (Version None)
Quarter: 2008Q1

REPORT INFORMATION
  Report Type: 
  Country: None (occurrence: None)
  Receive Date: 20080229
  Receipt Date: 20080220
  Transmission Date: 20080703
  Serious: Yes (Other)
  Sender: FDA-Public Use
  Company Number: US-PFIZER INC-2008016084

PATIENT
  Sex: Female

DRUGS (1)
  1. LIPITOR [Suspect]

REACTIONS (8)
  - BRAIN NEOPLASM [None]
  - CHEST PAIN [None]
  - DYSPEPSIA [None]
  - MEMORY IMPAIRMENT [None]
  - MYALGIA [None]
  - NERVOUSNESS [None]
  - SCREAMING [None]
  - STRESS [None]
